FAERS Safety Report 17270645 (Version 4)
Quarter: 2020Q3

REPORT INFORMATION
  Report Type: Report from Study
  Country: BE (occurrence: BE)
  Receive Date: 20200114
  Receipt Date: 20200706
  Transmission Date: 20201102
  Serious: Yes (Hospitalization, Other)
  Sender: FDA-Public Use
  Company Number: BE-BEH-2020111633

PATIENT
  Age: 60 Year
  Sex: Male

DRUGS (3)
  1. HIZENTRA [Suspect]
     Active Substance: HUMAN IMMUNOGLOBULIN G
     Dosage: 7 GRAM, QW
     Route: 058
  2. HIZENTRA [Suspect]
     Active Substance: HUMAN IMMUNOGLOBULIN G
     Indication: PRODUCT USED FOR UNKNOWN INDICATION
     Dosage: 7 GRAM, QW
     Route: 058
     Dates: start: 20191125
  3. HIZENTRA [Suspect]
     Active Substance: HUMAN IMMUNOGLOBULIN G
     Dosage: 7 GRAM, QW
     Route: 058
     Dates: start: 202006

REACTIONS (5)
  - Therapy interrupted [Unknown]
  - COVID-19 [Unknown]
  - No adverse event [Unknown]
  - Toxic skin eruption [Unknown]
  - Transplant [Unknown]

NARRATIVE: CASE EVENT DATE: 20191125
